FAERS Safety Report 15988736 (Version 4)
Quarter: 2019Q3

REPORT INFORMATION
  Report Type: Report from Study
  Country: JP (occurrence: JP)
  Receive Date: 20190221
  Receipt Date: 20190704
  Transmission Date: 20191004
  Serious: Yes (Death, Other)
  Sender: FDA-Public Use
  Company Number: JP-AMGEN-JPNNI2019025204

PATIENT
  Age: 61 Year
  Sex: Male
  Weight: 55.1 kg

DRUGS (8)
  1. OXAROL [Concomitant]
     Active Substance: MAXACALCITOL
     Dosage: 2.5 MICROGRAM (2.5 UG)
     Route: 042
  2. ETELCALCETIDE [Suspect]
     Active Substance: ETELCALCETIDE
     Dosage: 5 MG, 3 TIMES/WK (5 MG, Q56H)
     Route: 010
     Dates: start: 20180115, end: 20180128
  3. PRECIPITATED CALCIUM CARBONATE [Concomitant]
     Active Substance: CALCIUM CARBONATE
     Dosage: 1500 MILLIGRAM (1500 MG)
     Route: 048
  4. ETELCALCETIDE [Suspect]
     Active Substance: ETELCALCETIDE
     Dosage: 5 MILLIGRAM, 3 TIMES/WK (5 MG, Q56H)
     Route: 010
     Dates: start: 20180212, end: 20180308
  5. CINACALCET HYDROCHLORIDE. [Concomitant]
     Active Substance: CINACALCET HYDROCHLORIDE
     Dosage: 25 MG, EVERYDAY
     Route: 048
     Dates: start: 20130320
  6. FOSRENOL [Concomitant]
     Active Substance: LANTHANUM CARBONATE
     Indication: HYPERPHOSPHATAEMIA
     Dosage: 1500 MILLIGRAM (1500 MG)
     Route: 048
  7. ETELCALCETIDE [Suspect]
     Active Substance: ETELCALCETIDE
     Dosage: 5 MG, 3 TIMES/WK (5 MG, Q56H)
     Route: 010
     Dates: start: 20171204, end: 20180109
  8. ETELCALCETIDE [Suspect]
     Active Substance: ETELCALCETIDE
     Indication: HYPERPARATHYROIDISM SECONDARY
     Dosage: 5 MG, 3 TIMES/WK (5 MG, Q56H)
     Route: 010
     Dates: start: 20170322, end: 20170402

REACTIONS (3)
  - Cellulitis [Not Recovered/Not Resolved]
  - Sepsis [Fatal]
  - Gangrene [Not Recovered/Not Resolved]
